FAERS Safety Report 4984810-8 (Version None)
Quarter: 2006Q2

REPORT INFORMATION
  Report Type: 
  Country: None (occurrence: None)
  Receive Date: 20060426
  Receipt Date: 20060426
  Transmission Date: 20061013
  Serious: Yes (Hospitalization)
  Sender: FDA-Public Use
  Company Number: None

PATIENT
  Sex: Male
  Weight: 72.5755 kg

DRUGS (1)
  1. BCG LIVE    81 MG       AVENTIS PASTEUR [Suspect]
     Indication: BLADDER CANCER
     Dosage: 81 MG  WEEKLY  INTRAVESICAL
     Route: 043
     Dates: start: 20060127, end: 20060303

REACTIONS (1)
  - ARTHRITIS REACTIVE [None]
